FAERS Safety Report 16716677 (Version 1)
Quarter: 2019Q3

REPORT INFORMATION
  Report Type: Spontaneous
  Country: FR (occurrence: FR)
  Receive Date: 20190819
  Receipt Date: 20190819
  Transmission Date: 20191005
  Serious: Yes (Hospitalization)
  Sender: FDA-Public Use
  Company Number: FR-INDIVIOR US-INDV-121104-2019

PATIENT
  Age: 39 Year
  Sex: Female

DRUGS (1)
  1. SUBUTEX [Suspect]
     Active Substance: BUPRENORPHINE HYDROCHLORIDE
     Dosage: UNK
     Route: 042

REACTIONS (4)
  - Intentional product use issue [Unknown]
  - Skin ulcer [Recovering/Resolving]
  - Weight decreased [Recovering/Resolving]
  - Drug use disorder [Not Recovered/Not Resolved]
